FAERS Safety Report 7524798-9 (Version None)
Quarter: 2011Q2

REPORT INFORMATION
  Report Type: 
  Country: None (occurrence: None)
  Receive Date: 20110606
  Receipt Date: 20110526
  Transmission Date: 20111010
  Serious: Yes (Death, Other)
  Sender: FDA-Public Use
  Company Number: US-GENZYME-THYM-1002490

PATIENT
  Age: 45 Year
  Sex: Male

DRUGS (3)
  1. FLUDARA [Suspect]
     Indication: BONE MARROW CONDITIONING REGIMEN
     Route: 065
  2. MELPHALAN HYDROCHLORIDE [Concomitant]
     Indication: BONE MARROW CONDITIONING REGIMEN
     Route: 065
  3. THYMOGLOBULIN [Suspect]
     Indication: BONE MARROW CONDITIONING REGIMEN
     Route: 042

REACTIONS (3)
  - DEATH [None]
  - HUMAN HERPESVIRUS 6 INFECTION [None]
  - EPSTEIN-BARR VIRUS INFECTION [None]
